FAERS Safety Report 22605340 (Version 1)
Quarter: 2023Q2

REPORT INFORMATION
  Report Type: Spontaneous
  Country: CA (occurrence: CA)
  Receive Date: 20230615
  Receipt Date: 20230615
  Transmission Date: 20230721
  Serious: Yes (Other)
  Sender: FDA-Public Use
  Company Number: CA-PFIZER INC-202300182595

PATIENT
  Age: 20 Year
  Sex: Male

DRUGS (1)
  1. ABRILADA [Suspect]
     Active Substance: ADALIMUMAB-AFZB
     Indication: Colitis ulcerative
     Dosage: 1 DF, WEEK 0 160 MG, WEEK 2 80 MG AND THEN 40 MG EVERY OTHER WEEK, PREFILLED PEN
     Route: 058
     Dates: start: 20220711

REACTIONS (4)
  - Splenomegaly [Not Recovered/Not Resolved]
  - Therapeutic product effect incomplete [Unknown]
  - Off label use [Unknown]
  - Mononuclear cell count increased [Not Recovered/Not Resolved]
